FAERS Safety Report 6856948-1 (Version None)
Quarter: 2010Q3

REPORT INFORMATION
  Report Type: 
  Country: None (occurrence: None)
  Receive Date: 20100719
  Receipt Date: 20091112
  Transmission Date: 20110219
  Serious: No
  Sender: FDA-Public Use
  Company Number: US-KINGPHARMUSA00001-K200901426

PATIENT
  Sex: Female
  Weight: 66.667 kg

DRUGS (14)
  1. LEVOXYL [Suspect]
     Indication: BASEDOW'S DISEASE
     Dosage: 150 MCG, SIX DAYS PER WEEK
     Route: 048
     Dates: start: 20090101, end: 20090701
  2. LEVOXYL [Suspect]
     Dosage: 3 GRAINS, QD
     Route: 048
     Dates: start: 20080901, end: 20090101
  3. LEVOXYL [Suspect]
     Dosage: 150 MCG, QD
     Route: 048
     Dates: start: 20090701, end: 20091001
  4. LEVOXYL [Suspect]
     Dosage: 175 MCG, QD
     Route: 048
     Dates: start: 20091001
  5. CELEBREX [Concomitant]
     Indication: SPONDYLITIS
     Dosage: 200 MG, QD
  6. B12-VITAMIN [Concomitant]
     Dosage: UNK
  7. METFORMIN HCL [Concomitant]
     Dosage: 500 UNK, BID
  8. CLARINEX [Concomitant]
     Indication: SEASONAL ALLERGY
     Dosage: UNK
  9. MULTI-VITAMINS [Concomitant]
     Dosage: UNK
  10. FISH OIL [Concomitant]
     Indication: OSTEOPENIA
     Dosage: UNK
  11. EVISTA [Concomitant]
     Indication: OSTEOPENIA
     Dosage: UNK
  12. ACTONEL [Concomitant]
     Indication: OSTEOPENIA
     Dosage: UNK
  13. VITAMIN D [Concomitant]
     Dosage: UNK
  14. VITAMIN E [Concomitant]
     Dosage: UNK

REACTIONS (3)
  - ALOPECIA [None]
  - FATIGUE [None]
  - WEIGHT INCREASED [None]
